FAERS Safety Report 6452574-7 (Version None)
Quarter: 2009Q4

REPORT INFORMATION
  Report Type: 
  Country: None (occurrence: None)
  Receive Date: 20091123
  Receipt Date: 20091012
  Transmission Date: 20100525
  Serious: Yes (Death, Hospitalization, Other)
  Sender: FDA-Public Use
  Company Number: MX-SANOFI-AVENTIS-200917040GDDC

PATIENT
  Age: 75 Year
  Sex: Male

DRUGS (7)
  1. DOCETAXEL [Suspect]
     Dosage: DOSE UNIT: 75 MG/M**2
     Route: 041
     Dates: start: 20090618, end: 20090618
  2. BLINDED THERAPY [Suspect]
     Route: 048
     Dates: start: 20090518
  3. PREDNISONE [Suspect]
     Route: 048
     Dates: start: 20090618
  4. DEXAMETHASONE [Suspect]
     Indication: PREMEDICATION
  5. OMEPRAZOLE [Concomitant]
     Dates: start: 20090620, end: 20090727
  6. ENOXAPARIN SODIUM [Concomitant]
     Dates: start: 20090620, end: 20090727
  7. MEROPENEM [Concomitant]
     Dates: start: 20090628, end: 20090726

REACTIONS (15)
  - DIABETES MELLITUS INADEQUATE CONTROL [None]
  - DIARRHOEA [None]
  - FEMUR FRACTURE [None]
  - FOOD INTOLERANCE [None]
  - GASTROINTESTINAL HAEMORRHAGE [None]
  - GENERAL PHYSICAL HEALTH DETERIORATION [None]
  - HAEMODYNAMIC INSTABILITY [None]
  - LEUKOPENIA [None]
  - METABOLIC ACIDOSIS [None]
  - MULTI-ORGAN FAILURE [None]
  - NO THERAPEUTIC RESPONSE [None]
  - PLATELET COUNT DECREASED [None]
  - PNEUMONIA [None]
  - PULMONARY EMBOLISM [None]
  - WHITE BLOOD CELL COUNT INCREASED [None]
